FAERS Safety Report 23411102 (Version 2)
Quarter: 2025Q1

REPORT INFORMATION
  Report Type: Spontaneous
  Country: US (occurrence: US)
  Receive Date: 20240117
  Receipt Date: 20250115
  Transmission Date: 20250409
  Serious: Yes (Other)
  Sender: SK LIFE SCIENCE
  Company Number: US-SK LIFE SCIENCE, INC-SKPVG-2023-000367

PATIENT

DRUGS (4)
  1. XCOPRI [Suspect]
     Active Substance: CENOBAMATE
     Indication: Epilepsy
     Route: 048
  2. XCOPRI [Suspect]
     Active Substance: CENOBAMATE
     Indication: Seizure
     Dosage: 300 MILLIGRAM, QD
     Route: 048
  3. XCOPRI [Suspect]
     Active Substance: CENOBAMATE
     Indication: Autoimmune disorder
     Dosage: TWO 150 MILLIGRAM TABLETS DAILY FOR A 300MG DAILY DOSE
     Route: 048
     Dates: end: 202305
  4. XCOPRI [Suspect]
     Active Substance: CENOBAMATE
     Dosage: TWO 150 MILLIGRAM TABLETS DAILY FOR A 300MG DAILY DOSE
     Route: 048
     Dates: end: 20240329

REACTIONS (9)
  - Suicidal ideation [Unknown]
  - Seizure [Unknown]
  - Product dose omission issue [Recovered/Resolved]
  - Product dose omission issue [Recovered/Resolved]
  - Product dose omission issue [Not Recovered/Not Resolved]
  - Mental disability [Unknown]
  - Off label use [Not Recovered/Not Resolved]
  - Visual impairment [Unknown]
  - Amnesia [Unknown]

NARRATIVE: CASE EVENT DATE: 20230501
